FAERS Safety Report 22717709 (Version 4)
Quarter: 2025Q1

REPORT INFORMATION
  Report Type: Spontaneous
  Country: JP (occurrence: JP)
  Receive Date: 20230718
  Receipt Date: 20250204
  Transmission Date: 20250408
  Serious: Yes (Death, Hospitalization)
  Sender: RANBAXY
  Company Number: JP-SUN PHARMACEUTICAL INDUSTRIES LTD-2023R1-399755

PATIENT
  Age: 76 Year
  Sex: Female

DRUGS (4)
  1. AZITHROMYCIN [Suspect]
     Active Substance: AZITHROMYCIN
     Indication: Encephalitis
     Dosage: 500 MILLIGRAM, QD
     Route: 042
     Dates: start: 20211223, end: 20220116
  2. FLUCONAZOLE [Suspect]
     Active Substance: FLUCONAZOLE
     Indication: Encephalitis
     Dosage: 400 MILLIGRAM, QD
     Route: 042
     Dates: start: 20211223, end: 20220116
  3. FLUCYTOSINE [Suspect]
     Active Substance: FLUCYTOSINE
     Indication: Encephalitis
     Dosage: 1250 MILLIGRAM, QD
     Route: 048
     Dates: start: 20211223, end: 20220116
  4. RIFAMPIN [Suspect]
     Active Substance: RIFAMPIN
     Indication: Encephalitis
     Dosage: 600 MILLIGRAM, QD
     Route: 048
     Dates: start: 20211223, end: 20220116

REACTIONS (1)
  - Drug ineffective [Fatal]
